FAERS Safety Report 24761861 (Version 1)
Quarter: 2024Q4

REPORT INFORMATION
  Report Type: Spontaneous
  Country: US (occurrence: US)
  Receive Date: 20241221
  Receipt Date: 20241221
  Transmission Date: 20250115
  Serious: Yes (Death, Hospitalization, Other)
  Sender: ALEXION PHARMACEUTICALS
  Company Number: US-ASTRAZENECA-202412USA016534US

PATIENT
  Age: 47 Year

DRUGS (6)
  1. SEROQUEL XR [Suspect]
     Active Substance: QUETIAPINE FUMARATE
  2. SEROQUEL XR [Suspect]
     Active Substance: QUETIAPINE FUMARATE
  3. FENTANYL [Suspect]
     Active Substance: FENTANYL
  4. TRAMADOL [Suspect]
     Active Substance: TRAMADOL
  5. ESCITALOPRAM [Suspect]
     Active Substance: ESCITALOPRAM OXALATE
  6. PHENCYCLIDINE [Suspect]
     Active Substance: PHENCYCLIDINE

REACTIONS (3)
  - Toxicity to various agents [Fatal]
  - Completed suicide [Fatal]
  - Cardio-respiratory arrest [Fatal]
